FAERS Safety Report 7148267-3 (Version None)
Quarter: 2010Q4

REPORT INFORMATION
  Report Type: 
  Country: None (occurrence: None)
  Receive Date: 20101209
  Receipt Date: 20101129
  Transmission Date: 20110411
  Serious: Yes (Other)
  Sender: FDA-Public Use
  Company Number: US-ABBOTT-10P-163-0688635-00

PATIENT
  Sex: Male
  Weight: 73.548 kg

DRUGS (2)
  1. DEPAKOTE [Suspect]
     Indication: BIPOLAR DISORDER
     Dates: start: 20010101, end: 20030101
  2. PAXIL [Concomitant]
     Indication: PRODUCT USED FOR UNKNOWN INDICATION

REACTIONS (8)
  - CONCUSSION [None]
  - CONVULSION [None]
  - CORONARY ARTERY DISEASE [None]
  - FALL [None]
  - HYPERHIDROSIS [None]
  - ILL-DEFINED DISORDER [None]
  - MOOD SWINGS [None]
  - PALPITATIONS [None]
